FAERS Safety Report 5448126-8 (Version None)
Quarter: 2007Q3

REPORT INFORMATION
  Report Type: 
  Country: None (occurrence: None)
  Receive Date: 20070803
  Receipt Date: 20070613
  Transmission Date: 20080115
  Serious: No
  Sender: FDA-Public Use
  Company Number: 200711843BWH

PATIENT
  Age: 52 Year
  Sex: Male

DRUGS (3)
  1. NEXAVAR [Suspect]
     Indication: HEPATIC NEOPLASM MALIGNANT
     Dosage: MG,BID,ORAL
     Route: 048
     Dates: start: 20070601
  2. XANAX [Concomitant]
  3. MILK THISTLE [Concomitant]

REACTIONS (6)
  - ABDOMINAL PAIN [None]
  - DIARRHOEA [None]
  - FATIGUE [None]
  - INGROWING NAIL [None]
  - NAUSEA [None]
  - PAIN IN EXTREMITY [None]
